FAERS Safety Report 20298423 (Version 1)
Quarter: 2022Q1

REPORT INFORMATION
  Report Type: Spontaneous
  Country: US (occurrence: US)
  Receive Date: 20220105
  Receipt Date: 20220105
  Transmission Date: 20220424
  Serious: Yes (Hospitalization, Disabling)
  Sender: FDA-Public Use
  Company Number: US-ABBVIE-22K-163-4221060-00

PATIENT
  Sex: Male

DRUGS (1)
  1. HUMIRA [Suspect]
     Active Substance: ADALIMUMAB
     Indication: Ankylosing spondylitis
     Route: 058
     Dates: start: 2013

REACTIONS (8)
  - Renal failure [Not Recovered/Not Resolved]
  - Blindness [Unknown]
  - Deafness [Unknown]
  - Hepatic failure [Not Recovered/Not Resolved]
  - Pruritus [Not Recovered/Not Resolved]
  - Anxiety [Unknown]
  - Inflammation [Unknown]
  - Pain [Not Recovered/Not Resolved]
